FAERS Safety Report 4406237-X (Version None)
Quarter: 2004Q3

REPORT INFORMATION
  Report Type: 
  Country: None (occurrence: None)
  Receive Date: 20040723
  Receipt Date: 20020401
  Transmission Date: 20050211
  Serious: No
  Sender: FDA-Public Use
  Company Number: US-GLAXOSMITHKLINE-A0364591A

PATIENT
  Age: 63 Year
  Sex: Male
  Weight: 104.1 kg

DRUGS (1)
  1. AVANDIA [Suspect]
     Dosage: 4MG PER DAY
     Route: 048
     Dates: start: 20010601, end: 20010702

REACTIONS (2)
  - RASH GENERALISED [None]
  - URTICARIA [None]
